FAERS Safety Report 22083967 (Version 1)
Quarter: 2023Q1

REPORT INFORMATION
  Report Type: Spontaneous
  Country: US (occurrence: None)
  Receive Date: 20230308
  Receipt Date: 20230308
  Transmission Date: 20230418
  Serious: Yes (Disabling)
  Sender: FDA-Public Use
  Company Number: None

PATIENT
  Age: 39 Year
  Sex: Male
  Weight: 107.55 kg

DRUGS (14)
  1. VRAYLAR [Suspect]
     Active Substance: CARIPRAZINE
  2. LORATADINE [Suspect]
     Active Substance: LORATADINE
  3. INVEGA [Suspect]
     Active Substance: PALIPERIDONE
  4. ATROPINE\DIPHENOXYLATE [Concomitant]
     Active Substance: ATROPINE\DIPHENOXYLATE
  5. CLONAZEPAM [Concomitant]
     Active Substance: CLONAZEPAM
  6. ZOLPIDEM [Concomitant]
     Active Substance: ZOLPIDEM TARTRATE
  7. AMLODIPINE [Concomitant]
     Active Substance: AMLODIPINE BESYLATE
  8. Besylate [Concomitant]
  9. Restora Omega 3 [Concomitant]
  10. Restora Omega 6 [Concomitant]
  11. Restora Omega 9 [Concomitant]
  12. VITAMINS [Concomitant]
     Active Substance: VITAMINS
  13. FIBERCON [Concomitant]
     Active Substance: CALCIUM POLYCARBOPHIL
  14. FIBER LAX [Concomitant]
     Active Substance: CALCIUM POLYCARBOPHIL

REACTIONS (2)
  - Diarrhoea [None]
  - Insomnia [None]

NARRATIVE: CASE EVENT DATE: 20230308
